FAERS Safety Report 10179327 (Version 1)
Quarter: 2014Q2

REPORT INFORMATION
  Report Type: Spontaneous
  Country: US (occurrence: US)
  Receive Date: 20140519
  Receipt Date: 20140519
  Transmission Date: 20141212
  Serious: Yes (Life-Threatening, Hospitalization, Other)
  Sender: FDA-Public Use
  Company Number: US-CELGENEUS-163-21880-14052367

PATIENT
  Age: 76 Year
  Sex: Male
  Weight: 81.72 kg

DRUGS (14)
  1. REVLIMID [Suspect]
     Indication: PLASMA CELL MYELOMA
     Dosage: 25 MILLIGRAM
     Route: 048
     Dates: start: 20140128
  2. REVLIMID [Suspect]
     Dosage: 10 MILLIGRAM
     Route: 048
     Dates: start: 201403
  3. PRAVASTATIN [Concomitant]
     Indication: HYPERLIPIDAEMIA
     Route: 065
  4. HYDRALAZINE HCL [Concomitant]
     Indication: HYPERTENSION
     Route: 065
  5. AMLODIPINE BESYLATE [Concomitant]
     Indication: HYPERTENSION
     Route: 065
  6. LOSARTAN POTASSIUM [Concomitant]
     Indication: HYPERTENSION
     Route: 065
  7. LABETALOL [Concomitant]
     Indication: HYPERTENSION
     Route: 065
  8. DEXAMETHASONE [Concomitant]
     Indication: ADJUVANT THERAPY
     Route: 065
  9. VITAMIN B12 [Concomitant]
     Indication: SUPPLEMENTATION THERAPY
     Route: 065
  10. CALCIUM-VITAMIN D [Concomitant]
     Indication: SUPPLEMENTATION THERAPY
     Dosage: 500-125MG
     Route: 065
  11. ROPINIROLE HCL [Concomitant]
     Indication: MOVEMENT DISORDER
     Route: 065
  12. ASPIRIN [Concomitant]
     Indication: CARDIAC DISORDER
     Route: 065
  13. LASIX [Concomitant]
     Indication: CARDIAC DISORDER
     Route: 065
  14. LASIX [Concomitant]
     Indication: DIURETIC THERAPY

REACTIONS (2)
  - Bronchitis [Not Recovered/Not Resolved]
  - Pulmonary embolism [Not Recovered/Not Resolved]
